FAERS Safety Report 13632241 (Version 1)
Quarter: 2017Q2

REPORT INFORMATION
  Report Type: Report from Study
  Country: US (occurrence: US)
  Receive Date: 20170608
  Receipt Date: 20170608
  Transmission Date: 20170830
  Serious: Yes (Hospitalization)
  Sender: FDA-Public Use
  Company Number: US-VIFOR (INTERNATIONAL) INC.-VIT-2017-06448

PATIENT
  Age: 59 Year
  Sex: Female

DRUGS (22)
  1. CLARINEX [Concomitant]
     Active Substance: DESLORATADINE
  2. NIASPAN [Concomitant]
     Active Substance: NIACIN
  3. LASIX [Concomitant]
     Active Substance: FUROSEMIDE
  4. AMBIEN [Concomitant]
     Active Substance: ZOLPIDEM TARTRATE
  5. NORVASC [Concomitant]
     Active Substance: AMLODIPINE BESYLATE
  6. VELTASSA [Suspect]
     Active Substance: PATIROMER
     Indication: HYPERKALAEMIA
     Route: 048
     Dates: start: 20161229
  7. FISH OIL [Concomitant]
     Active Substance: FISH OIL
  8. ACETYLSALICYLIC ACID [Concomitant]
     Active Substance: ASPIRIN
  9. TYLENOL/COD [Concomitant]
  10. LANTUS [Concomitant]
     Active Substance: INSULIN GLARGINE
  11. LYRICA [Concomitant]
     Active Substance: PREGABALIN
  12. BENADRYL [Concomitant]
     Active Substance: DIPHENHYDRAMINE HYDROCHLORIDE
  13. FERROUS SULFATE. [Concomitant]
     Active Substance: FERROUS SULFATE
  14. LEXAPRO [Concomitant]
     Active Substance: ESCITALOPRAM OXALATE
  15. PENTOXIFYLLINE. [Concomitant]
     Active Substance: PENTOXIFYLLINE
  16. TOPROL XL [Concomitant]
     Active Substance: METOPROLOL SUCCINATE
  17. COQ10 [Concomitant]
     Active Substance: UBIDECARENONE
  18. HUMALOG [Concomitant]
     Active Substance: INSULIN LISPRO
  19. WARFARIN [Concomitant]
     Active Substance: WARFARIN
  20. FLONASE [Concomitant]
     Active Substance: FLUTICASONE PROPIONATE
  21. LIPITOR [Concomitant]
     Active Substance: ATORVASTATIN CALCIUM
  22. MECLIZINE [Concomitant]
     Active Substance: MECLIZINE HYDROCHLORIDE

REACTIONS (1)
  - Infection [Recovered/Resolved]

NARRATIVE: CASE EVENT DATE: 20170529
